FAERS Safety Report 6328179-5 (Version None)
Quarter: 2009Q3

REPORT INFORMATION
  Report Type: 
  Country: None (occurrence: None)
  Receive Date: 20090825
  Receipt Date: 20081001
  Transmission Date: 20100115
  Serious: No
  Sender: FDA-Public Use
  Company Number: US-ABBOTT-08P-163-0479088-00

PATIENT
  Sex: Male
  Weight: 78.542 kg

DRUGS (6)
  1. SYNTHROID [Suspect]
     Indication: HYPOTHYROIDISM
     Route: 048
     Dates: start: 20080926
  2. FLECINAID [Concomitant]
     Indication: ATRIAL FIBRILLATION
  3. WARFARIN SODIUM [Concomitant]
     Indication: DRUG USE FOR UNKNOWN INDICATION
  4. HYOSCYAMINE SULFATE [Concomitant]
     Indication: DRUG USE FOR UNKNOWN INDICATION
  5. BONEVA [Concomitant]
     Indication: DRUG USE FOR UNKNOWN INDICATION
  6. ERGOCALCIFEROL [Concomitant]
     Indication: DRUG USE FOR UNKNOWN INDICATION

REACTIONS (1)
  - PLATELET COUNT DECREASED [None]
